FAERS Safety Report 9062784 (Version 1)
Quarter: 2013Q1

REPORT INFORMATION
  Report Type: Spontaneous
  Country: GB (occurrence: GB)
  Receive Date: 20130213
  Receipt Date: 20130213
  Transmission Date: 20140127
  Serious: Yes (Disabling)
  Sender: FDA-Public Use
  Company Number: GB-TEVA-384348ISR

PATIENT
  Age: 85 Year
  Sex: Female
  Weight: 85 kg

DRUGS (17)
  1. ATENOLOL [Suspect]
     Dates: start: 20130109
  2. LEVOTHYROXINE [Concomitant]
     Dates: start: 20120821, end: 20121129
  3. LEVOTHYROXINE [Concomitant]
     Dates: start: 20121210
  4. ASPIRIN [Concomitant]
     Dates: start: 20120925
  5. DILTIAZEM [Concomitant]
     Dates: start: 20120925
  6. ISOSORBIDE MONONITRATE [Concomitant]
     Dates: start: 20120925
  7. MONTELUKAST [Concomitant]
     Dates: start: 20120925
  8. OMEPRAZOLE [Concomitant]
     Dates: start: 20120925
  9. TIOTROPIUM [Concomitant]
     Dates: start: 20120925
  10. TRAMADOL [Concomitant]
     Dates: start: 20120925
  11. VENTOLIN [Concomitant]
     Dates: start: 20121107, end: 20121205
  12. GLANDOSANE [Concomitant]
     Dates: start: 20121113
  13. SERETIDE [Concomitant]
     Dates: start: 20121113, end: 20121114
  14. SERETIDE [Concomitant]
     Dates: start: 20121210, end: 20121211
  15. AQUEOUS CREAM [Concomitant]
     Dates: start: 20121210, end: 20130107
  16. IBUPROFEN [Concomitant]
     Dates: start: 20121210
  17. ERYTHROMYCIN [Concomitant]
     Dates: start: 20130109, end: 20130116

REACTIONS (1)
  - Agitation [Recovered/Resolved]
